FAERS Safety Report 5848780-2 (Version None)
Quarter: 2008Q3

REPORT INFORMATION
  Report Type: 
  Country: None (occurrence: None)
  Receive Date: 20080814
  Receipt Date: 20080801
  Transmission Date: 20090109
  Serious: Yes (Hospitalization)
  Sender: FDA-Public Use
  Company Number: 237331J08USA

PATIENT
  Age: 68 Year
  Sex: Male
  Weight: 109.7705 kg

DRUGS (6)
  1. REBIF [Suspect]
     Indication: MULTIPLE SCLEROSIS
     Dosage: 44 MCG, 3 IN 1 WEEKS, SUBCUTANEOUS; NOT REPORTED, NOT REPORTED, NOT REPORTED
     Route: 058
     Dates: start: 20050215, end: 20080601
  2. REBIF [Suspect]
     Indication: MULTIPLE SCLEROSIS
     Dosage: 44 MCG, 3 IN 1 WEEKS, SUBCUTANEOUS; NOT REPORTED, NOT REPORTED, NOT REPORTED
     Route: 058
     Dates: start: 20080601, end: 20080715
  3. METFORMIN HCL [Concomitant]
  4. JANUVIA (ANTI-DIABETICS) [Concomitant]
  5. LISINOPRIL [Concomitant]
  6. LIPITOR [Concomitant]

REACTIONS (3)
  - PROSTATE CANCER [None]
  - TREATMENT NONCOMPLIANCE [None]
  - URINARY INCONTINENCE [None]
